FAERS Safety Report 23217928 (Version 1)
Quarter: 2023Q4

REPORT INFORMATION
  Report Type: Other
  Country: None (occurrence: US)
  Receive Date: 20231122
  Receipt Date: 20231122
  Transmission Date: 20240110
  Serious: Yes (Hospitalization)
  Sender: FDA-Public Use
  Company Number: US-B.Braun Medical Inc.-2148591

PATIENT
  Age: 28 Year
  Sex: Female

DRUGS (11)
  1. MAGNESIUM SULFATE IN DEXTROSE [Suspect]
     Active Substance: MAGNESIUM SULFATE
     Indication: Pre-eclampsia
  2. METHYLPREDNISOLONE SODIUM SUCCINATE [Suspect]
     Active Substance: METHYLPREDNISOLONE SODIUM SUCCINATE
  3. FUROSEMIDE [Suspect]
     Active Substance: FUROSEMIDE
  4. Azathioprine and hydroxychloroquine (HCQ) [Concomitant]
  5. ASPIRIN [Concomitant]
     Active Substance: ASPIRIN
  6. NIFEDIPINE [Concomitant]
     Active Substance: NIFEDIPINE
  7. LABETALOL [Concomitant]
     Active Substance: LABETALOL\LABETALOL HYDROCHLORIDE
  8. High-dose intravenous (IV) solumedrol [Concomitant]
  9. PREDNISONE [Concomitant]
     Active Substance: PREDNISONE
  10. ENOXAPARIN [Concomitant]
     Active Substance: ENOXAPARIN
  11. HUMAN IMMUNOGLOBULIN G [Concomitant]
     Active Substance: HUMAN IMMUNOGLOBULIN G

REACTIONS (2)
  - Drug ineffective [None]
  - Maternal exposure during pregnancy [None]
